FAERS Safety Report 8603324-7 (Version None)
Quarter: 2012Q3

REPORT INFORMATION
  Report Type: 
  Country: None (occurrence: None)
  Receive Date: 20120817
  Receipt Date: 20120816
  Transmission Date: 20120928
  Serious: Yes (Death, Life-Threatening, Disabling, Other)
  Sender: FDA-Public Use
  Company Number: PHHY2012JP026039

PATIENT
  Sex: Female
  Weight: 54 kg

DRUGS (47)
  1. NEUTROGIN [Concomitant]
     Route: 058
  2. AZACTAM                                 /SCH/ [Concomitant]
     Dosage: UNK UKN, UNK
     Route: 041
  3. SANDIMMUNE [Suspect]
     Dosage: 110 MG, UNK
     Route: 042
     Dates: start: 20120321, end: 20120321
  4. ACYCLOVIR [Concomitant]
     Route: 048
  5. ALKERAN [Concomitant]
     Dosage: UNK UKN, UNK
     Route: 065
     Dates: start: 20120308
  6. FUROSEMIDE [Concomitant]
     Route: 041
  7. SOLU-CORTEF [Concomitant]
     Dosage: UNK UKN, UNK
  8. M.V.I.-12 [Concomitant]
     Dosage: UNK UKN, UNK
     Route: 041
  9. HUMULIN R [Concomitant]
     Dosage: UNK UKN, UNK
     Route: 041
  10. LACTEC [Concomitant]
     Dosage: UNK UKN, UNK
     Route: 041
  11. FLUCONAZOLE [Concomitant]
     Route: 048
  12. PROGRAF [Concomitant]
     Indication: PROPHYLAXIS AGAINST GRAFT VERSUS HOST DISEASE
     Dosage: UNK UKN, UNK
     Route: 042
     Dates: start: 20120323, end: 20120411
  13. PROGRAF [Concomitant]
     Dosage: UNK UKN, UNK
     Route: 041
  14. METHOTREXATE [Concomitant]
     Dosage: UNK UKN, UNK
     Route: 041
  15. NEUTROGIN [Concomitant]
     Dosage: UNK UKN, UNK
     Route: 041
  16. HEPARIN SODIUM [Concomitant]
     Dosage: UNK UKN, UNK
     Route: 041
  17. SODIUM BICARBONATE [Concomitant]
     Dosage: UNK UKN, UNK
     Route: 042
  18. MIYA-BM [Concomitant]
     Dosage: UNK UKN, UNK
     Route: 048
  19. DOBUTAMINE [Concomitant]
     Route: 041
  20. METHYLPREDNISOLONE SODIUM SUCCINATE [Concomitant]
     Dosage: UNK UKN, UNK
     Route: 041
  21. PROMAC [Concomitant]
     Dosage: UNK UKN, UNK
     Route: 048
  22. CLOSTRIDIUM BUTYRICUM [Concomitant]
     Route: 048
  23. FLUDARABINE PHOSPHATE [Concomitant]
     Dosage: UNK UKN, UNK
     Route: 065
     Dates: start: 20120308
  24. ATARAX [Concomitant]
     Route: 041
  25. HIRUDOID [Concomitant]
     Dosage: UNK UKN, UNK
     Route: 065
  26. FULMETA [Concomitant]
     Dosage: UNK UKN, UNK
     Route: 065
  27. ACETAMINOPHEN [Concomitant]
     Dosage: UNK UKN, UNK
     Route: 048
  28. ARTIFICIAL TEARS                   = [Concomitant]
     Dosage: UNK UKN, UNK
  29. SANDIMMUNE [Suspect]
     Indication: PROPHYLAXIS AGAINST GRAFT VERSUS HOST DISEASE
     Route: 042
     Dates: start: 20120312, end: 20120320
  30. MEROPENEM [Concomitant]
     Route: 041
  31. DORIPENEM MONOHYDRATE [Concomitant]
     Dosage: UNK UKN, UNK
     Route: 041
  32. AMINO ACIDS [Concomitant]
     Indication: RENAL FAILURE
     Dosage: UNK UKN, UNK
     Route: 041
  33. EPINASTINE HYDROCHLORIDE [Concomitant]
     Dosage: UNK UKN, UNK
     Route: 048
  34. OXYCODONE HYDROCHLORIDE [Concomitant]
     Dosage: UNK UKN, UNK
     Route: 048
  35. OMEPRAZOLE [Concomitant]
     Route: 048
  36. AZACTAM [Concomitant]
     Route: 042
  37. ALLOID [Concomitant]
     Dosage: UNK UKN, UNK
     Route: 048
  38. XYLOCAINE [Concomitant]
     Dosage: UNK UKN, UNK
     Route: 065
  39. CELECOXIB [Concomitant]
     Dosage: UNK UKN, UNK
     Route: 048
  40. LEVOFLOXACIN [Concomitant]
     Route: 048
  41. FUROSEMIDE [Concomitant]
     Dosage: UNK UKN, UNK
     Route: 042
  42. DOPAMINE HCL [Concomitant]
     Dosage: UNK UKN, UNK
     Route: 041
  43. ACETAMINOPHEN [Concomitant]
     Dosage: UNK UKN, UNK
     Route: 051
  44. MUCOSTA [Concomitant]
     Route: 048
  45. SODIUM BICARBONATE [Concomitant]
     Route: 041
  46. POTASSIUM [Concomitant]
     Dosage: UNK UKN, UNK
     Route: 041
  47. LIDOMEX [Concomitant]
     Dosage: UNK UKN, UNK
     Route: 065

REACTIONS (16)
  - ACUTE RESPIRATORY DISTRESS SYNDROME [None]
  - MUSCULAR WEAKNESS [None]
  - MYALGIA [None]
  - BLOOD CREATINE PHOSPHOKINASE INCREASED [None]
  - ASPARTATE AMINOTRANSFERASE INCREASED [None]
  - CARDIAC FAILURE [None]
  - BLOOD UREA INCREASED [None]
  - PAIN [None]
  - WEIGHT INCREASED [None]
  - RHABDOMYOLYSIS [None]
  - ENGRAFT FAILURE [None]
  - TOXIC SKIN ERUPTION [None]
  - FEBRILE NEUTROPENIA [None]
  - PRURITUS [None]
  - BLOOD LACTATE DEHYDROGENASE INCREASED [None]
  - OXYGEN SATURATION DECREASED [None]
